FAERS Safety Report 10203930 (Version 1)
Quarter: 2014Q2

REPORT INFORMATION
  Report Type: Spontaneous
  Country: GB (occurrence: GB)
  Receive Date: 20140529
  Receipt Date: 20140529
  Transmission Date: 20141212
  Serious: Yes (Disabling, Congenital Anomaly)
  Sender: FDA-Public Use
  Company Number: PHHY2014GB064704

PATIENT
  Sex: Female

DRUGS (11)
  1. MIRTAZAPINE [Suspect]
     Indication: SCHIZOPHRENIA
     Route: 064
  2. LAMOTRIGINE [Suspect]
     Indication: SCHIZOPHRENIA
     Route: 064
  3. ARIPIPRAZOLE [Suspect]
     Indication: SCHIZOPHRENIA
     Route: 064
  4. PROCYCLIDINE [Suspect]
     Indication: SCHIZOPHRENIA
     Route: 064
  5. ZOPICLONE [Suspect]
     Indication: SCHIZOPHRENIA
     Route: 064
  6. NICORETTE [Concomitant]
     Route: 064
     Dates: start: 20130808
  7. VENTOLIN [Concomitant]
     Route: 064
     Dates: start: 20131129
  8. CEFALEXIN [Concomitant]
     Indication: URINARY TRACT INFECTION
     Route: 064
     Dates: start: 20130827
  9. CYCLIZINE [Concomitant]
     Route: 064
     Dates: start: 20130902
  10. CLARITHROMYCIN [Concomitant]
     Route: 064
     Dates: start: 20131129
  11. VITAMIN SUPPLEMENT [Concomitant]
     Indication: PREGNANCY
     Route: 064

REACTIONS (4)
  - Developmental hip dysplasia [Unknown]
  - Agitation neonatal [Unknown]
  - Feeding disorder neonatal [Unknown]
  - Muscular weakness [Unknown]
